FAERS Safety Report 21983602 (Version 1)
Quarter: 2023Q1

REPORT INFORMATION
  Report Type: Spontaneous
  Country: CN (occurrence: CN)
  Receive Date: 20230213
  Receipt Date: 20230213
  Transmission Date: 20230417
  Serious: Yes (Hospitalization, Other)
  Sender: FDA-Public Use
  Company Number: None

PATIENT
  Age: 5 Year
  Sex: Female
  Weight: 16 kg

DRUGS (5)
  1. CYCLOPHOSPHAMIDE [Suspect]
     Active Substance: CYCLOPHOSPHAMIDE
     Indication: Chemotherapy
     Dosage: 0.495 G, QD, DILUTED WITH 80ML OF 0.9% SODIUM CHLORIDE
     Route: 042
     Dates: start: 20230120, end: 20230120
  2. CYCLOPHOSPHAMIDE [Suspect]
     Active Substance: CYCLOPHOSPHAMIDE
     Indication: Leukaemia
  3. MESNA [Suspect]
     Active Substance: MESNA
     Indication: Chemotherapy
     Dosage: 2.6 ML (ON 0/4/8 HOURS), DOSAGE FORM: INJECTION
     Route: 042
     Dates: start: 20230120
  4. MESNA [Suspect]
     Active Substance: MESNA
     Indication: Leukaemia
  5. SODIUM CHLORIDE [Suspect]
     Active Substance: SODIUM CHLORIDE
     Indication: Medication dilution
     Dosage: 0.9%, 80 ML, QD, USED TO DILUTE 0.495 G OF CYCLOPHOSPHAMIDE, DOSAGE FORM: INJECTION
     Route: 042
     Dates: start: 20230120, end: 20230120

REACTIONS (2)
  - Agranulocytosis [Not Recovered/Not Resolved]
  - Infection [Unknown]

NARRATIVE: CASE EVENT DATE: 20230123
